FAERS Safety Report 21223431 (Version 3)
Quarter: 2023Q4

REPORT INFORMATION
  Report Type: Spontaneous
  Country: US (occurrence: US)
  Receive Date: 20220817
  Receipt Date: 20231018
  Transmission Date: 20240109
  Serious: Yes (Other)
  Sender: FDA-Public Use
  Company Number: US-BRISTOL-MYERS SQUIBB COMPANY-2022-090375

PATIENT
  Age: 75 Year
  Sex: Female
  Weight: 73 kg

DRUGS (2)
  1. REVLIMID [Suspect]
     Active Substance: LENALIDOMIDE
     Indication: Plasma cell myeloma
     Dosage: FREQUENCY: DAY 1-28 Q 28 DAYS .
     Route: 048
     Dates: start: 20200501
  2. REVLIMID [Suspect]
     Active Substance: LENALIDOMIDE
     Dosage: 1 PO QD
     Route: 048
     Dates: start: 20220212

REACTIONS (4)
  - Diarrhoea [Not Recovered/Not Resolved]
  - Neuropathy peripheral [Not Recovered/Not Resolved]
  - Musculoskeletal stiffness [Unknown]
  - Condition aggravated [Unknown]
